FAERS Safety Report 10165389 (Version 1)
Quarter: 2014Q2

REPORT INFORMATION
  Report Type: Spontaneous
  Country: US (occurrence: US)
  Receive Date: 20140510
  Receipt Date: 20140510
  Transmission Date: 20141212
  Serious: No
  Sender: FDA-Public Use
  Company Number: US-BRISTOL-MYERS SQUIBB COMPANY-20442976

PATIENT
  Age: 65 Year
  Sex: Female
  Weight: 117.91 kg

DRUGS (9)
  1. BYDUREON [Suspect]
     Indication: TYPE 2 DIABETES MELLITUS
     Route: 058
     Dates: start: 201401
  2. METFORMIN HCL [Suspect]
     Route: 048
  3. LANTUS [Suspect]
     Dosage: 1DF:60UTS
  4. INSULIN [Suspect]
     Dosage: 1DF:60 UNITS LONG ACTING INSULIN
  5. METOPROLOL [Concomitant]
     Indication: BLOOD PRESSURE
     Route: 048
  6. LISINOPRIL [Concomitant]
     Route: 048
  7. SIMVASTATIN [Concomitant]
     Route: 048
  8. ASPIRIN [Concomitant]
     Route: 048
  9. CO-Q-10 PLUS [Concomitant]
     Route: 048

REACTIONS (2)
  - Blood glucose increased [Not Recovered/Not Resolved]
  - Weight fluctuation [Not Recovered/Not Resolved]
